FAERS Safety Report 12056717 (Version 1)
Quarter: 2016Q1

REPORT INFORMATION
  Report Type: Report from Study
  Country: US (occurrence: US)
  Receive Date: 20160210
  Receipt Date: 20160210
  Transmission Date: 20160526
  Serious: Yes (Other)
  Sender: FDA-Public Use
  Company Number: US-AMGEN-USASL2016014515

PATIENT
  Age: 75 Year
  Sex: Male

DRUGS (1)
  1. ENBREL [Suspect]
     Active Substance: ETANERCEPT
     Indication: PSORIASIS
     Dosage: 50 MG, QWK
     Route: 065

REACTIONS (10)
  - Spinal cord haemorrhage [Unknown]
  - Dysphemia [Not Recovered/Not Resolved]
  - Dementia Alzheimer^s type [Unknown]
  - Cerebral haemorrhage [Unknown]
  - Back pain [Unknown]
  - Dysphonia [Not Recovered/Not Resolved]
  - Diabetes mellitus [Unknown]
  - Hip arthroplasty [Unknown]
  - Road traffic accident [Unknown]
  - Fall [Unknown]

NARRATIVE: CASE EVENT DATE: 2009
